FAERS Safety Report 11515888 (Version 1)
Quarter: 2015Q3

REPORT INFORMATION
  Report Type: Spontaneous
  Country: US (occurrence: US)
  Receive Date: 20150916
  Receipt Date: 20150916
  Transmission Date: 20151125
  Serious: Yes (Other)
  Sender: FDA-Public Use
  Company Number: US-ALLERGAN-1518539US

PATIENT
  Age: 4 Year
  Sex: Female

DRUGS (2)
  1. REFRESH LACRI-LUBE [Suspect]
     Active Substance: MINERAL OIL\PETROLATUM
     Indication: EXCESSIVE EYE BLINKING
     Dosage: UNK, BID
     Route: 047
     Dates: start: 2014
  2. REFRESH LACRI-LUBE [Suspect]
     Active Substance: MINERAL OIL\PETROLATUM
     Dosage: UNK, BID
     Route: 047
     Dates: start: 2014

REACTIONS (6)
  - Off label use [Unknown]
  - Gastrostomy [Not Recovered/Not Resolved]
  - Eye swelling [Recovered/Resolved]
  - Tracheostomy [Not Recovered/Not Resolved]
  - Conjunctival haemorrhage [Recovered/Resolved]
  - Eye discharge [Recovered/Resolved]

NARRATIVE: CASE EVENT DATE: 2015
